FAERS Safety Report 10884728 (Version 1)
Quarter: 2015Q1

REPORT INFORMATION
  Report Type: Spontaneous
  Country: US (occurrence: None)
  Receive Date: 20150227
  Receipt Date: 20150227
  Transmission Date: 20150721
  Serious: Yes (Other)
  Sender: FDA-Public Use
  Company Number: None

PATIENT
  Age: 35 Year
  Sex: Male
  Weight: 78.2 kg

DRUGS (10)
  1. TOPIRAMATE. [Concomitant]
     Active Substance: TOPIRAMATE
  2. DESMOPRESSIN [Concomitant]
     Active Substance: DESMOPRESSIN
  3. ZONISAMIDE. [Concomitant]
     Active Substance: ZONISAMIDE
  4. CARBAMIDE PEROXIDE [Concomitant]
     Active Substance: CARBAMIDE PEROXIDE
  5. LAMOTRIGINE. [Concomitant]
     Active Substance: LAMOTRIGINE
  6. LAMOTRIGINE. [Suspect]
     Active Substance: LAMOTRIGINE
     Indication: SEIZURE
     Dosage: 2/11/2015-ONE DOSE ONLY
     Route: 048
     Dates: start: 20150211
  7. CALCIUM CARB-VIT D [Concomitant]
  8. ACETAMINOPHEN. [Concomitant]
     Active Substance: ACETAMINOPHEN
  9. POTASSIUM CL [Concomitant]
     Active Substance: POTASSIUM CHLORIDE
  10. BISACODYL. [Concomitant]
     Active Substance: BISACODYL

REACTIONS (1)
  - Rash erythematous [None]

NARRATIVE: CASE EVENT DATE: 20150211
